FAERS Safety Report 4505554-2 (Version None)
Quarter: 2004Q4

REPORT INFORMATION
  Report Type: 
  Country: None (occurrence: None)
  Receive Date: 20041119
  Receipt Date: 20040922
  Transmission Date: 20050328
  Serious: No
  Sender: FDA-Public Use
  Company Number: US-GLAXOSMITHKLINE-A0526878A

PATIENT
  Sex: Male

DRUGS (3)
  1. AVODART [Suspect]
     Indication: BENIGN PROSTATIC HYPERPLASIA
     Dosage: 1CAP ALTERNATE DAYS
     Route: 048
  2. FLOMAX [Concomitant]
  3. ASPIRIN [Concomitant]

REACTIONS (1)
  - HAEMATURIA [None]
